FAERS Safety Report 6825637-1 (Version None)
Quarter: 2010Q3

REPORT INFORMATION
  Report Type: 
  Country: None (occurrence: None)
  Receive Date: 20100709
  Receipt Date: 20100309
  Transmission Date: 20110219
  Serious: Yes (Death, Hospitalization, Other)
  Sender: FDA-Public Use
  Company Number: US-ASTRAZENECA-2010SE31590

PATIENT
  Age: 12852 Day
  Sex: Female

DRUGS (2)
  1. SEROQUEL [Suspect]
     Route: 048
     Dates: start: 20030113
  2. PROPOXYPHENE HCL [Suspect]
     Dates: start: 20050316

REACTIONS (4)
  - AFFECTIVE DISORDER [None]
  - CONVULSION [None]
  - DRUG TOXICITY [None]
  - OVERDOSE [None]
